FAERS Safety Report 4705899-7 (Version None)
Quarter: 2005Q2

REPORT INFORMATION
  Report Type: 
  Country: None (occurrence: None)
  Receive Date: 20050629
  Receipt Date: 20050621
  Transmission Date: 20051028
  Serious: Yes (Hospitalization)
  Sender: FDA-Public Use
  Company Number: 2005073243

PATIENT
  Age: 76 Year
  Sex: Male

DRUGS (11)
  1. ZITHROMAX [Suspect]
     Indication: ILL-DEFINED DISORDER
     Dosage: 250 MG (250 MG, 1 IN 1 D), ORAL
     Route: 048
     Dates: start: 20050310, end: 20050314
  2. PREVISCAN (FLUINDIONE) [Suspect]
     Indication: ATRIAL FIBRILLATION
     Dosage: 10 MG (10 MG, 1 IN 1 D), ORAL
     Route: 048
  3. PREVISCAN (FLUINDIONE) [Suspect]
     Indication: CARDIAC FLUTTER
     Dosage: 10 MG (10 MG, 1 IN 1 D), ORAL
     Route: 048
  4. CORTANCYL (PREDNISONE) [Concomitant]
  5. ENALAPRIL MALEATE AND HYDROCHLOROTHIAZIDE [Concomitant]
  6. DILTIAZEM HYDROCHLORIDE [Concomitant]
  7. ALLOPURINOL [Concomitant]
  8. ESBERIVEN FORTE (MELILOT, RUTOSIDE) [Concomitant]
  9. LORAZEPAM [Concomitant]
  10. OMEPRAZOLE [Concomitant]
  11. ACETAMINOPHEN [Concomitant]

REACTIONS (4)
  - DRUG INTERACTION [None]
  - HAEMATOMA [None]
  - INTERNATIONAL NORMALISED RATIO INCREASED [None]
  - PROTHROMBIN LEVEL DECREASED [None]
